FAERS Safety Report 6435502-X (Version None)
Quarter: 2009Q4

REPORT INFORMATION
  Report Type: 
  Country: None (occurrence: None)
  Receive Date: 20091111
  Receipt Date: 20091102
  Transmission Date: 20100525
  Serious: Yes (Other)
  Sender: FDA-Public Use
  Company Number: CA-BIOGENIDEC-2009BI035438

PATIENT
  Age: 0 Day

DRUGS (1)
  1. TYSABRI [Suspect]
     Indication: DRUG EXPOSURE DURING PREGNANCY
     Route: 064
     Dates: start: 20080506, end: 20090212

REACTIONS (2)
  - FOETAL HEART RATE DECELERATION [None]
  - UMBILICAL CORD AROUND NECK [None]
